FAERS Safety Report 5610742-8 (Version None)
Quarter: 2008Q1

REPORT INFORMATION
  Report Type: 
  Country: None (occurrence: None)
  Receive Date: 20080201
  Receipt Date: 20080125
  Transmission Date: 20080703
  Serious: Yes (Hospitalization)
  Sender: FDA-Public Use
  Company Number: PHHO2007HK13749

PATIENT
  Age: 26 Year
  Sex: Female
  Weight: 41.8 kg

DRUGS (4)
  1. FOLIC ACID [Concomitant]
  2. PREMARIN [Concomitant]
     Indication: DELAYED PUBERTY
  3. PROVERA [Concomitant]
     Indication: DELAYED PUBERTY
  4. EXJADE [Suspect]
     Indication: BLOOD IRON INCREASED
     Dosage: 1250 MG, QD
     Route: 048
     Dates: start: 20070420, end: 20070814

REACTIONS (8)
  - BLOOD CREATININE INCREASED [None]
  - BLOOD UREA INCREASED [None]
  - CREATININE RENAL CLEARANCE DECREASED [None]
  - ELECTROLYTE IMBALANCE [None]
  - MYALGIA [None]
  - OEDEMA PERIPHERAL [None]
  - PROTEINURIA [None]
  - RENAL TUBULAR DISORDER [None]
